FAERS Safety Report 4669493-9 (Version None)
Quarter: 2005Q2

REPORT INFORMATION
  Report Type: 
  Country: None (occurrence: None)
  Receive Date: 20050523
  Receipt Date: 20050506
  Transmission Date: 20051028
  Serious: Yes (Death, Hospitalization)
  Sender: FDA-Public Use
  Company Number: JP-ROCHE-404255

PATIENT
  Age: 69 Year
  Sex: Male

DRUGS (5)
  1. KYTRIL [Suspect]
     Route: 042
     Dates: start: 20050418, end: 20050418
  2. GEMZAR [Suspect]
     Route: 042
     Dates: start: 20050418, end: 20050418
  3. MAXIPIME [Suspect]
     Indication: INFECTION
     Route: 042
     Dates: start: 20050415, end: 20050418
  4. MUCODYNE [Concomitant]
     Dosage: FORM REPORTED AS ORAL FORMULATION.
     Route: 048
  5. MORPHINE HCL ELIXIR [Concomitant]
     Route: 048

REACTIONS (5)
  - DISSEMINATED INTRAVASCULAR COAGULATION [None]
  - LIVER DISORDER [None]
  - LUNG DISORDER [None]
  - PULMONARY OEDEMA [None]
  - RESPIRATORY FAILURE [None]
